FAERS Safety Report 4600554-6 (Version None)
Quarter: 2005Q1

REPORT INFORMATION
  Report Type: 
  Country: None (occurrence: None)
  Receive Date: 20050304
  Receipt Date: 20050222
  Transmission Date: 20050727
  Serious: Yes (Life-Threatening, Hospitalization, Disabling)
  Sender: FDA-Public Use
  Company Number: 2005035615

PATIENT
  Age: 65 Year
  Sex: Female

DRUGS (2)
  1. CELEBREX [Suspect]
     Indication: ARTHRALGIA
     Dosage: 400 MG (200 MG, 2 IN 1 D), ORAL
     Route: 048
     Dates: start: 20050120, end: 20050131
  2. ALENDRONATE SODIUM [Concomitant]

REACTIONS (1)
  - TOXIC EPIDERMAL NECROLYSIS [None]
